FAERS Safety Report 14770514 (Version 2)
Quarter: 2018Q2

REPORT INFORMATION
  Report Type: Spontaneous
  Country: JP (occurrence: JP)
  Receive Date: 20180417
  Receipt Date: 20180517
  Transmission Date: 20180711
  Serious: Yes (Other)
  Sender: FDA-Public Use
  Company Number: JP-DSJP-DSJ-2018-114320

PATIENT

DRUGS (5)
  1. PREDNISOLONE. [Concomitant]
     Active Substance: PREDNISOLONE
     Indication: MICROSCOPIC POLYANGIITIS
     Dosage: 20MG/DAY
     Route: 048
  2. LIXIANA TABLETS [Suspect]
     Active Substance: EDOXABAN TOSYLATE
     Indication: DEEP VEIN THROMBOSIS
     Dosage: 15MG/DAY
     Route: 048
     Dates: start: 20170524
  3. AZATHIOPRINE. [Concomitant]
     Active Substance: AZATHIOPRINE
     Indication: INTERSTITIAL LUNG DISEASE
  4. PREDNISOLONE. [Concomitant]
     Active Substance: PREDNISOLONE
     Indication: INTERSTITIAL LUNG DISEASE
  5. AZATHIOPRINE. [Concomitant]
     Active Substance: AZATHIOPRINE
     Indication: MICROSCOPIC POLYANGIITIS
     Dosage: 100MG/DAY
     Route: 048

REACTIONS (3)
  - Subcutaneous haematoma [Unknown]
  - Septic shock [Unknown]
  - Underdose [Unknown]
